FAERS Safety Report 12454626 (Version 1)
Quarter: 2016Q2

REPORT INFORMATION
  Report Type: Spontaneous
  Country: None (occurrence: None)
  Receive Date: 20160609
  Receipt Date: 20160609
  Transmission Date: 20160815
  Serious: No
  Sender: FDA-Public Use
  Company Number: None

PATIENT
  Sex: Male

DRUGS (2)
  1. LISINOPRIL. [Suspect]
     Active Substance: LISINOPRIL
  2. LOSARTAN. [Suspect]
     Active Substance: LOSARTAN

REACTIONS (3)
  - Blood pressure inadequately controlled [None]
  - Cough [None]
  - Inability to afford medication [None]
